FAERS Safety Report 7738950-0 (Version None)
Quarter: 2011Q3

REPORT INFORMATION
  Report Type: 
  Country: None (occurrence: None)
  Receive Date: 20110909
  Receipt Date: 20110831
  Transmission Date: 20111222
  Serious: No
  Sender: FDA-Public Use
  Company Number: US-BIOGENIDEC-2011BI027389

PATIENT
  Age: 48 Year
  Sex: Female

DRUGS (1)
  1. TYSABRI [Suspect]
     Indication: MULTIPLE SCLEROSIS
     Route: 042
     Dates: start: 20090522

REACTIONS (8)
  - ABASIA [None]
  - GAIT DISTURBANCE [None]
  - URINARY INCONTINENCE [None]
  - SPEECH DISORDER [None]
  - MEMORY IMPAIRMENT [None]
  - TREMOR [None]
  - DIZZINESS [None]
  - BALANCE DISORDER [None]
